FAERS Safety Report 25640227 (Version 1)
Quarter: 2025Q3

REPORT INFORMATION
  Report Type: Spontaneous
  Country: US (occurrence: US)
  Receive Date: 20250804
  Receipt Date: 20250804
  Transmission Date: 20251020
  Serious: Yes (Other)
  Sender: MACLEODS
  Company Number: US-MLMSERVICE-20250718-PI580870-00327-1

PATIENT

DRUGS (5)
  1. APIXABAN [Suspect]
     Active Substance: APIXABAN
     Indication: Pulmonary embolism
     Dosage: 10 MG TWICE DAILY FOR 7 DAYS BEFORE FILLING HER CURRENT PRESCRIPTION OF APIXABAN 5 MG TWICE DAILY.
     Route: 065
  2. APIXABAN [Suspect]
     Active Substance: APIXABAN
     Dosage: 10 MG TWICE DAILY FOR 7 DAYS
     Route: 065
  3. VALPROATE SODIUM [Suspect]
     Active Substance: VALPROATE SODIUM
     Indication: Mania
     Dosage: TOTAL VALPROIC ACID LEVEL BETWEEN 50 AND 125 MG/ML
     Route: 065
  4. VALPROATE SODIUM [Suspect]
     Active Substance: VALPROATE SODIUM
     Dosage: 500 MG TWICE DAILY, AND ON DAY 21 OF ADMISSION
     Route: 065
  5. LITHIUM [Concomitant]
     Active Substance: LITHIUM
     Route: 065

REACTIONS (2)
  - Deep vein thrombosis [Unknown]
  - Drug interaction [Unknown]
